FAERS Safety Report 8339489-4 (Version None)
Quarter: 2012Q2

REPORT INFORMATION
  Report Type: 
  Country: None (occurrence: None)
  Receive Date: 20120507
  Receipt Date: 20120427
  Transmission Date: 20120825
  Serious: Yes (Hospitalization, Other)
  Sender: FDA-Public Use
  Company Number: PHHY2011US25495

PATIENT
  Age: 31 Year
  Sex: Female

DRUGS (13)
  1. DILANTIN [Concomitant]
     Dosage: 2 DF, QD
  2. TYSABRI [Concomitant]
     Dosage: 300 MG, QW4
  3. LEXAPRO [Concomitant]
     Dosage: 5 MG, QD
     Route: 048
  4. PHENAZOPYRIDINE HCL TAB [Concomitant]
     Dosage: 1 DF, TID
  5. AMPICILLIN [Concomitant]
     Dosage: 1 DF, BID
     Route: 048
  6. FERROUS FUMARATE [Concomitant]
     Dosage: 1 DF, QD
  7. TRAZODONE HCL [Concomitant]
     Dosage: 50 MG, UNK
  8. BENADRYL [Concomitant]
  9. GILENYA [Suspect]
     Indication: RELAPSING-REMITTING MULTIPLE SCLEROSIS
     Dosage: 0.5 MG, QD
     Route: 048
     Dates: start: 20101229, end: 20110323
  10. LEVONORGESTREL [Concomitant]
  11. PREDNISONE TAB [Concomitant]
     Dosage: 1 DF, TID
  12. PROTONIX [Concomitant]
  13. PEPCID [Concomitant]
     Dosage: 40 MG, QD

REACTIONS (47)
  - BRAIN HERNIATION [None]
  - APHASIA [None]
  - PHLEBITIS [None]
  - MULTIPLE SCLEROSIS RELAPSE [None]
  - ASTHENIA [None]
  - FATIGUE [None]
  - GAIT DISTURBANCE [None]
  - POLLAKIURIA [None]
  - CONFUSIONAL STATE [None]
  - COGNITIVE DISORDER [None]
  - HEADACHE [None]
  - OPTIC NEURITIS [None]
  - SCOTOMA [None]
  - INCONTINENCE [None]
  - SOMNOLENCE [None]
  - EATING DISORDER [None]
  - ANXIETY [None]
  - DEHYDRATION [None]
  - DRUG INEFFECTIVE [None]
  - INTRACRANIAL PRESSURE INCREASED [None]
  - HOSTILITY [None]
  - AGGRESSION [None]
  - HYPOAESTHESIA [None]
  - VISUAL ACUITY REDUCED [None]
  - MICTURITION URGENCY [None]
  - DEPRESSION [None]
  - INFLUENZA [None]
  - CENTRAL NERVOUS SYSTEM LESION [None]
  - PERSONALITY CHANGE [None]
  - ANGER [None]
  - AFFECTIVE DISORDER [None]
  - SPEECH DISORDER [None]
  - CARDIAC MYXOMA [None]
  - DEEP VEIN THROMBOSIS [None]
  - NYSTAGMUS [None]
  - DIZZINESS [None]
  - BRAIN OEDEMA [None]
  - MEMORY IMPAIRMENT [None]
  - CYSTITIS [None]
  - DYSURIA [None]
  - PUPILLARY DEFORMITY [None]
  - EYE PAIN [None]
  - DYSPHONIA [None]
  - UNRESPONSIVE TO STIMULI [None]
  - HEMIPARESIS [None]
  - CONVULSION [None]
  - URINARY RETENTION [None]
